FAERS Safety Report 18423033 (Version 2)
Quarter: 2020Q4

REPORT INFORMATION
  Report Type: Spontaneous
  Country: GB (occurrence: GB)
  Receive Date: 20201023
  Receipt Date: 20201027
  Transmission Date: 20210114
  Serious: Yes (Life-Threatening, Hospitalization, Other)
  Sender: FDA-Public Use
  Company Number: GB-LUNDBECK-DKLU3023000

PATIENT
  Age: 29 Year
  Sex: Male

DRUGS (12)
  1. FYCOMPA [Suspect]
     Active Substance: PERAMPANEL
     Route: 048
     Dates: start: 202007, end: 20200822
  2. FYCOMPA [Suspect]
     Active Substance: PERAMPANEL
     Route: 048
     Dates: start: 20200823, end: 20200823
  3. BRIVARACETAM [Concomitant]
     Active Substance: BRIVARACETAM
     Indication: PRODUCT USED FOR UNKNOWN INDICATION
     Route: 065
  4. CLOBAZAM. [Suspect]
     Active Substance: CLOBAZAM
     Indication: PARTIAL SEIZURES
     Route: 048
     Dates: end: 20200822
  5. PREDNISOLONE. [Concomitant]
     Active Substance: PREDNISOLONE
     Indication: PRODUCT USED FOR UNKNOWN INDICATION
     Route: 065
  6. FYCOMPA [Suspect]
     Active Substance: PERAMPANEL
     Indication: TEMPORAL LOBE EPILEPSY
     Route: 048
     Dates: start: 20200128, end: 202005
  7. ESLICARBAZEPINE [Concomitant]
     Active Substance: ESLICARBAZEPINE
     Indication: PRODUCT USED FOR UNKNOWN INDICATION
     Route: 065
  8. PERAMPANEL [Suspect]
     Active Substance: PERAMPANEL
     Indication: EPILEPSY
     Route: 048
     Dates: start: 20200128, end: 20200823
  9. METHYLPREDNISOLONE. [Suspect]
     Active Substance: METHYLPREDNISOLONE
     Indication: AUTOIMMUNE DISORDER
     Route: 042
     Dates: start: 20200820, end: 202008
  10. CLOBAZAM. [Suspect]
     Active Substance: CLOBAZAM
     Indication: TEMPORAL LOBE EPILEPSY
     Route: 048
     Dates: end: 20200822
  11. CLOBAZAM. [Suspect]
     Active Substance: CLOBAZAM
     Route: 048
     Dates: start: 20200823, end: 20200823
  12. FYCOMPA [Suspect]
     Active Substance: PERAMPANEL
     Indication: PARTIAL SEIZURES
     Route: 048
     Dates: start: 202005, end: 202006

REACTIONS (8)
  - Suicidal ideation [Recovered/Resolved with Sequelae]
  - Hallucination, auditory [Recovering/Resolving]
  - Intentional overdose [Recovered/Resolved with Sequelae]
  - Psychotic disorder [Recovered/Resolved]
  - Somnolence [Recovering/Resolving]
  - Abnormal behaviour [Recovering/Resolving]
  - Suicide attempt [Recovered/Resolved]
  - Anger [Recovering/Resolving]

NARRATIVE: CASE EVENT DATE: 202005
